FAERS Safety Report 5007755-6 (Version None)
Quarter: 2006Q2

REPORT INFORMATION
  Report Type: 
  Country: None (occurrence: None)
  Receive Date: 20060522
  Receipt Date: 20050629
  Transmission Date: 20061013
  Serious: Yes (Hospitalization)
  Sender: FDA-Public Use
  Company Number: US-GLAXOSMITHKLINE-A0565255A

PATIENT
  Age: 26 Year
  Sex: Female
  Weight: 50 kg

DRUGS (16)
  1. PAXIL CR [Suspect]
     Indication: ANXIETY
     Route: 048
     Dates: start: 20040701, end: 20050201
  2. ALCOHOL [Concomitant]
     Route: 048
  3. UNSPECIFIED MEDICATIONS [Concomitant]
  4. DILAUDID [Concomitant]
     Indication: BACK PAIN
     Dates: start: 20040901, end: 20040901
  5. LORTAB [Concomitant]
     Indication: BACK PAIN
     Dosage: 5MG AS DIRECTED
     Route: 048
     Dates: start: 20040901
  6. VICODIN [Concomitant]
     Indication: BACK PAIN
  7. FLEXERIL [Concomitant]
  8. PERCOCET [Concomitant]
     Indication: BACK PAIN
     Dates: start: 20040901
  9. VALIUM [Concomitant]
     Indication: BACK PAIN
     Dates: start: 20040901
  10. TORADOL [Concomitant]
  11. ANZEMET [Concomitant]
  12. PHENERGAN HCL [Concomitant]
  13. PROTONIX [Concomitant]
  14. DEMEROL [Concomitant]
  15. MIDRIN [Concomitant]
  16. IBUPROFEN [Concomitant]

REACTIONS (43)
  - AGGRESSION [None]
  - AGITATION [None]
  - AKATHISIA [None]
  - ANXIETY [None]
  - BIPOLAR DISORDER [None]
  - BORDERLINE PERSONALITY DISORDER [None]
  - BRAIN HYPOXIA [None]
  - BRUXISM [None]
  - COMA [None]
  - CONVULSION [None]
  - CYANOSIS [None]
  - DEPENDENCE [None]
  - DEPRESSION [None]
  - DRUG ABUSER [None]
  - DRUG INEFFECTIVE [None]
  - DRUG TOXICITY [None]
  - DRUG WITHDRAWAL SYNDROME [None]
  - DYSARTHRIA [None]
  - DYSTHYMIC DISORDER [None]
  - EXCORIATION [None]
  - HEADACHE [None]
  - HOMICIDAL IDEATION [None]
  - INAPPROPRIATE AFFECT [None]
  - INTENTIONAL OVERDOSE [None]
  - IRRITABILITY [None]
  - LIBIDO DECREASED [None]
  - LIGAMENT SPRAIN [None]
  - LOSS OF CONSCIOUSNESS [None]
  - MOOD SWINGS [None]
  - MYOFASCIAL PAIN SYNDROME [None]
  - PANIC ATTACK [None]
  - POSTURING [None]
  - RESPIRATORY FAILURE [None]
  - ROAD TRAFFIC ACCIDENT [None]
  - SHOULDER PAIN [None]
  - SOMNOLENCE [None]
  - SPUTUM ABNORMAL [None]
  - SUICIDAL IDEATION [None]
  - SUICIDE ATTEMPT [None]
  - TACHYCARDIA [None]
  - TACHYPNOEA [None]
  - TEARFULNESS [None]
  - THEFT [None]
